FAERS Safety Report 16772144 (Version 3)
Quarter: 2019Q3

REPORT INFORMATION
  Report Type: Spontaneous
  Country: US (occurrence: US)
  Receive Date: 20190904
  Receipt Date: 20190920
  Transmission Date: 20191005
  Serious: Yes (Other)
  Sender: FDA-Public Use
  Company Number: US-PFIZER INC-2019371904

PATIENT
  Age: 29 Year
  Sex: Male
  Weight: 86.17 kg

DRUGS (4)
  1. CHANTIX [Suspect]
     Active Substance: VARENICLINE TARTRATE
     Dosage: 1 MG, 2X/DAY
     Route: 048
     Dates: end: 20190812
  2. LISINOPRIL. [Concomitant]
     Active Substance: LISINOPRIL
     Indication: HYPERTENSION
     Dosage: 10 MG, 1X/DAY
     Route: 048
  3. CHANTIX [Suspect]
     Active Substance: VARENICLINE TARTRATE
     Indication: SMOKING CESSATION THERAPY
     Dosage: 0.5 MG, (STARTER PACK, FOR 3 WEEKS)
     Route: 048
     Dates: start: 201907
  4. CHANTIX [Suspect]
     Active Substance: VARENICLINE TARTRATE
     Dosage: 1 MG, (FOR 42 TABLETS)
     Route: 048

REACTIONS (3)
  - Loss of consciousness [Recovered/Resolved]
  - Depressed mood [Unknown]
  - Limb injury [Recovered/Resolved]

NARRATIVE: CASE EVENT DATE: 20190812
